FAERS Safety Report 5897842-2 (Version None)
Quarter: 2008Q3

REPORT INFORMATION
  Report Type: 
  Country: None (occurrence: None)
  Receive Date: 20080924
  Receipt Date: 20080924
  Transmission Date: 20090109
  Serious: No
  Sender: FDA-Public Use
  Company Number: None

PATIENT
  Age: 39 Year
  Sex: Male
  Weight: 82 kg

DRUGS (1)
  1. MOLINDONE HCL [Suspect]
     Dosage: 100MG DAILY PO

REACTIONS (1)
  - URINARY RETENTION [None]
